FAERS Safety Report 23813559 (Version 1)
Quarter: 2024Q2

REPORT INFORMATION
  Report Type: Spontaneous
  Country: CA (occurrence: None)
  Receive Date: 20240503
  Receipt Date: 20240503
  Transmission Date: 20240716
  Serious: Yes (Other)
  Sender: FDA-Public Use
  Company Number: CA-ROCHE-3555143

PATIENT
  Sex: Male

DRUGS (13)
  1. RITUXIMAB [Suspect]
     Active Substance: RITUXIMAB
     Indication: Still^s disease
     Route: 065
  2. ADALIMUMAB [Suspect]
     Active Substance: ADALIMUMAB\ISOPROPYL ALCOHOL
     Indication: Juvenile idiopathic arthritis
     Route: 065
  3. INFLIXIMAB [Suspect]
     Active Substance: INFLIXIMAB
     Indication: Juvenile idiopathic arthritis
     Route: 065
  4. THYMOCYTE IMMUNE GLOBULIN NOS [Concomitant]
     Active Substance: THYMOCYTE IMMUNE GLOBULIN NOS
     Route: 065
  5. BUSULFAN [Concomitant]
     Active Substance: BUSULFAN
     Route: 065
  6. CANAKINUMAB [Concomitant]
     Active Substance: CANAKINUMAB
     Route: 065
  7. CYCLOSPORINE [Concomitant]
     Active Substance: CYCLOSPORINE
     Route: 065
  8. FLUDARABINE [Concomitant]
     Active Substance: FLUDARABINE PHOSPHATE
     Route: 065
  9. METHOTREXATE [Concomitant]
     Active Substance: METHOTREXATE
     Route: 065
  10. METHYLPREDNISOLONE [Concomitant]
     Active Substance: METHYLPREDNISOLONE
     Route: 065
  11. MYCOPHENOLATE MOFETIL [Concomitant]
     Active Substance: MYCOPHENOLATE MOFETIL
  12. SILTUXIMAB [Concomitant]
     Active Substance: SILTUXIMAB
  13. TOFACITINIB [Concomitant]
     Active Substance: TOFACITINIB
     Route: 065

REACTIONS (19)
  - BK virus infection [Recovered/Resolved]
  - Bone erosion [Recovered/Resolved]
  - COVID-19 [Recovered/Resolved]
  - Cataract [Recovered/Resolved]
  - Cushingoid [Recovered/Resolved]
  - Cystitis viral [Recovered/Resolved]
  - Off label use [Unknown]
  - Epstein-Barr virus infection reactivation [Recovered/Resolved]
  - Foot fracture [Recovered/Resolved]
  - Hepatic steatosis [Recovered/Resolved]
  - Hypertension [Recovered/Resolved]
  - Juvenile idiopathic arthritis [Recovered/Resolved]
  - Mucosal inflammation [Recovered/Resolved]
  - Osteopenia [Recovered/Resolved]
  - Pneumonia viral [Recovered/Resolved]
  - Rhinovirus infection [Recovered/Resolved]
  - Short stature [Recovered/Resolved]
  - Spinal instability [Recovered/Resolved]
  - Steatohepatitis [Recovered/Resolved]
